FAERS Safety Report 16368796 (Version 1)
Quarter: 2019Q2

REPORT INFORMATION
  Report Type: Spontaneous
  Country: FR (occurrence: FR)
  Receive Date: 20190529
  Receipt Date: 20190529
  Transmission Date: 20190711
  Serious: Yes (Other)
  Sender: FDA-Public Use
  Company Number: FR-PFIZER INC-2019222214

PATIENT
  Age: 39 Year
  Sex: Male
  Weight: 86 kg

DRUGS (7)
  1. PREGABALIN. [Suspect]
     Active Substance: PREGABALIN
     Indication: CLUSTER HEADACHE
     Dosage: 600 MG, 1X/DAY
     Route: 048
     Dates: start: 2013
  2. TEGRETOL [Suspect]
     Active Substance: CARBAMAZEPINE
     Indication: CLUSTER HEADACHE
     Dosage: 800 MG, 1X/DAY
     Route: 048
     Dates: start: 2013
  3. BACLOFENE [Concomitant]
     Active Substance: BACLOFEN
     Indication: ALCOHOLISM
     Dosage: 12 DF, 1X/DAY
     Route: 048
     Dates: start: 201209
  4. ALCOOL [Suspect]
     Active Substance: ALCOHOL
     Dosage: UNK
     Dates: start: 1996
  5. CODOLIPRANE [Suspect]
     Active Substance: ACETAMINOPHEN\CODEINE PHOSPHATE
     Dosage: 10 DF, 1X/DAY
     Route: 048
     Dates: start: 201212, end: 2013
  6. COCAINE [Suspect]
     Active Substance: COCAINE
     Dosage: UNK
     Route: 045
     Dates: start: 201506
  7. TRAMADOL. [Suspect]
     Active Substance: TRAMADOL
     Indication: CLUSTER HEADACHE
     Dosage: 9 DF, 1X/DAY
     Route: 048
     Dates: start: 2013

REACTIONS (4)
  - Drug abuse [Not Recovered/Not Resolved]
  - Drug ineffective for unapproved indication [Not Recovered/Not Resolved]
  - Off label use [Not Recovered/Not Resolved]
  - Trigeminal neuralgia [Not Recovered/Not Resolved]

NARRATIVE: CASE EVENT DATE: 2013
